FAERS Safety Report 18405587 (Version 1)
Quarter: 2020Q4

REPORT INFORMATION
  Report Type: Spontaneous
  Country: CN (occurrence: CN)
  Receive Date: 20201020
  Receipt Date: 20201020
  Transmission Date: 20210114
  Serious: Yes (Hospitalization)
  Sender: FDA-Public Use
  Company Number: CN-PFIZER INC-2020403664

PATIENT
  Age: 48 Year
  Sex: Male
  Weight: 95 kg

DRUGS (1)
  1. CYTOSAR [Suspect]
     Active Substance: CYTARABINE
     Indication: ACUTE LEUKAEMIA
     Dosage: 4000 MG, 2X/DAY
     Route: 041
     Dates: start: 20200930, end: 20201003

REACTIONS (3)
  - Nausea [Recovering/Resolving]
  - Myelosuppression [Recovering/Resolving]
  - Abdominal discomfort [Recovering/Resolving]

NARRATIVE: CASE EVENT DATE: 20201007
